FAERS Safety Report 9741980 (Version 1)
Quarter: 2013Q4

REPORT INFORMATION
  Report Type: Spontaneous
  Country: US (occurrence: US)
  Receive Date: 20131210
  Receipt Date: 20131210
  Transmission Date: 20140711
  Serious: Yes (Hospitalization)
  Sender: FDA-Public Use
  Company Number: US-TEVA-449934USA

PATIENT
  Age: 31 Year
  Sex: Male
  Weight: 82 kg

DRUGS (4)
  1. OXYCODONE W/IBUPROFEN [Suspect]
     Route: 048
  2. FENTANYL [Suspect]
  3. HEROIN [Suspect]
  4. COCAINE [Suspect]

REACTIONS (4)
  - Suicide attempt [Recovered/Resolved]
  - Respiratory depression [Recovered/Resolved]
  - Somnolence [Recovered/Resolved]
  - Lethargy [Recovered/Resolved]
